FAERS Safety Report 8543540 (Version 2)
Quarter: 2015Q3

REPORT INFORMATION
  Report Type: Spontaneous
  Country: US (occurrence: US)
  Receive Date: 20120503
  Receipt Date: 20150724
  Transmission Date: 20151125
  Serious: No
  Sender: FDA-Public Use
  Company Number: US-PFIZER INC-2012101095

PATIENT
  Age: 52 Year
  Sex: Female
  Weight: 77.1 kg

DRUGS (3)
  1. AVINZA [Suspect]
     Active Substance: MORPHINE SULFATE
     Indication: MUSCULOSKELETAL PAIN
     Dosage: 45 MG, 2X/DAY
     Route: 048
     Dates: start: 201203
  2. AVINZA [Suspect]
     Active Substance: MORPHINE SULFATE
     Dosage: UNK, 2X/DAY
  3. AZOR [Concomitant]
     Active Substance: AMLODIPINE BESYLATE\OLMESARTAN MEDOXOMIL
     Indication: HYPERTENSION
     Dosage: 5/20 MG, DAILY

REACTIONS (2)
  - Circumstance or information capable of leading to medication error [Unknown]
  - Drug effect incomplete [Unknown]

NARRATIVE: CASE EVENT DATE: 2012
